FAERS Safety Report 7762212-9 (Version None)
Quarter: 2011Q3

REPORT INFORMATION
  Report Type: 
  Country: None (occurrence: None)
  Receive Date: 20110920
  Receipt Date: 20110915
  Transmission Date: 20111222
  Serious: Yes (Other)
  Sender: FDA-Public Use
  Company Number: CA-PFIZER INC-2011218558

PATIENT
  Age: 57 Year
  Sex: Male
  Weight: 90.703 kg

DRUGS (2)
  1. TYLENOL W/ CODEINE NO. 3 [Concomitant]
     Indication: ARTHRALGIA
     Dosage: UNK
  2. CELEBREX [Suspect]
     Indication: ARTHRITIS
     Dosage: 200 MG, AS NEEDED
     Route: 048
     Dates: start: 20110828, end: 20110915

REACTIONS (3)
  - MUSCLE RUPTURE [None]
  - MUSCULOSKELETAL CHEST PAIN [None]
  - DYSPNOEA [None]
